FAERS Safety Report 5752193-1 (Version None)
Quarter: 2008Q2

REPORT INFORMATION
  Report Type: 
  Country: None (occurrence: None)
  Receive Date: 20080529
  Receipt Date: 20080522
  Transmission Date: 20081010
  Serious: Yes (Other)
  Sender: FDA-Public Use
  Company Number: US-ELI_LILLY_AND_COMPANY-US200805000151

PATIENT
  Sex: Female
  Weight: 90.702 kg

DRUGS (4)
  1. BYETTA [Suspect]
     Indication: METABOLIC SYNDROME
     Dosage: 5 UG, 2/D
     Route: 058
     Dates: start: 20061108, end: 20080228
  2. BYETTA [Suspect]
     Dosage: 5 UG, 2/D
  3. ACTOS [Concomitant]
     Dosage: 15 MG, UNK
  4. MICARDIS [Concomitant]

REACTIONS (11)
  - ABASIA [None]
  - ABDOMINAL PAIN [None]
  - ASTHENIA [None]
  - AUTONOMIC NEUROPATHY [None]
  - DEPRESSED LEVEL OF CONSCIOUSNESS [None]
  - DIARRHOEA [None]
  - FEELING ABNORMAL [None]
  - HYPERHIDROSIS [None]
  - MOTOR DYSFUNCTION [None]
  - PALLOR [None]
  - SOMNOLENCE [None]
